FAERS Safety Report 10332605 (Version 2)
Quarter: 2014Q3

REPORT INFORMATION
  Report Type: Report from Study
  Country: JP (occurrence: JP)
  Receive Date: 20140722
  Receipt Date: 20140818
  Transmission Date: 20150326
  Serious: Yes (Hospitalization)
  Sender: FDA-Public Use
  Company Number: JP-GLAXOSMITHKLINE-B1015677A

PATIENT
  Age: 83 Year
  Sex: Male
  Weight: 48 kg

DRUGS (21)
  1. MYSLEE [Concomitant]
     Active Substance: ZOLPIDEM TARTRATE
     Route: 048
  2. ITOROL [Concomitant]
     Active Substance: ISOSORBIDE MONONITRATE
     Route: 048
  3. MAGMITT [Concomitant]
     Active Substance: MAGNESIUM OXIDE
     Route: 048
  4. FRANDOL [Concomitant]
     Active Substance: ISOSORBIDE DINITRATE
     Dosage: 40MG PER DAY
     Route: 062
  5. SIGMART [Concomitant]
     Active Substance: NICORANDIL
     Route: 048
  6. PLAVIX [Concomitant]
     Active Substance: CLOPIDOGREL BISULFATE
     Route: 048
     Dates: end: 20140517
  7. PREDNISOLONE. [Concomitant]
     Active Substance: PREDNISOLONE
     Indication: IMMUNE THROMBOCYTOPENIC PURPURA
     Route: 048
     Dates: end: 20140502
  8. PREDNISOLONE. [Concomitant]
     Active Substance: PREDNISOLONE
     Indication: IMMUNE THROMBOCYTOPENIC PURPURA
     Route: 048
     Dates: start: 20140517, end: 20140620
  9. REBAMIPIDE [Concomitant]
     Active Substance: REBAMIPIDE
     Indication: GASTRITIS PROPHYLAXIS
     Route: 048
     Dates: start: 20140623, end: 20140703
  10. REVOLADE [Suspect]
     Active Substance: ELTROMBOPAG
     Indication: IMMUNE THROMBOCYTOPENIC PURPURA
     Route: 048
     Dates: start: 20140502, end: 20140619
  11. ARTIST [Concomitant]
     Active Substance: CARVEDILOL
     Route: 048
  12. BAYASPIRIN [Concomitant]
     Active Substance: ASPIRIN
     Route: 048
  13. FERROMIA [Concomitant]
     Active Substance: FERROUS CITRATE
     Route: 048
  14. PREDNISOLONE. [Concomitant]
     Active Substance: PREDNISOLONE
     Indication: IMMUNE THROMBOCYTOPENIC PURPURA
     Route: 048
     Dates: start: 20140503, end: 20140516
  15. GENINAX [Suspect]
     Active Substance: GARENOXACIN MESYLATE
     Route: 048
     Dates: start: 20140612, end: 20140616
  16. URSO [Concomitant]
     Active Substance: URSODIOL
     Route: 048
  17. COVERSYL [Concomitant]
     Active Substance: PERINDOPRIL
     Route: 048
  18. TAKEPRON [Concomitant]
     Active Substance: LANSOPRAZOLE
     Route: 048
  19. REVOLADE [Suspect]
     Active Substance: ELTROMBOPAG
     Indication: IMMUNE THROMBOCYTOPENIC PURPURA
     Dosage: 12.5MG PER DAY
     Route: 048
     Dates: start: 20140623, end: 20140625
  20. DIART [Concomitant]
     Active Substance: AZOSEMIDE
     Route: 048
     Dates: start: 20140607
  21. NITROPEN [Concomitant]
     Active Substance: NITROGLYCERIN
     Route: 048

REACTIONS (4)
  - Brain natriuretic peptide increased [Recovering/Resolving]
  - Pyrexia [Recovered/Resolved]
  - Interstitial lung disease [Recovered/Resolved]
  - Tension headache [Recovered/Resolved]

NARRATIVE: CASE EVENT DATE: 20140516
